FAERS Safety Report 15340576 (Version 1)
Quarter: 2018Q3

REPORT INFORMATION
  Report Type: Report from Study
  Country: US (occurrence: US)
  Receive Date: 20180831
  Receipt Date: 20180831
  Transmission Date: 20181010
  Serious: Yes (Death)
  Sender: FDA-Public Use
  Company Number: US-ACTELION-A-NJ2018-168785

PATIENT
  Age: 72 Year
  Sex: Female
  Weight: 46.26 kg

DRUGS (3)
  1. UPTRAVI [Suspect]
     Active Substance: SELEXIPAG
     Indication: PULMONARY ARTERIAL HYPERTENSION
     Dosage: 1200 MCG, BID
     Route: 048
  2. OPSUMIT [Suspect]
     Active Substance: MACITENTAN
     Indication: PULMONARY ARTERIAL HYPERTENSION
     Dosage: 10 MG, QD
     Route: 048
  3. REVATIO [Concomitant]
     Active Substance: SILDENAFIL CITRATE

REACTIONS (11)
  - Malaise [Unknown]
  - Heart rate increased [Unknown]
  - Abdominal distension [Unknown]
  - Chest pain [Unknown]
  - Compression fracture [Not Recovered/Not Resolved]
  - Death [Fatal]
  - Dyspnoea exertional [Unknown]
  - Peripheral swelling [Unknown]
  - Constipation [Unknown]
  - Condition aggravated [Unknown]
  - Palpitations [Not Recovered/Not Resolved]
